FAERS Safety Report 9720177 (Version 2)
Quarter: 2013Q4

REPORT INFORMATION
  Report Type: Report from Study
  Country: US (occurrence: US)
  Receive Date: 20131129
  Receipt Date: 20131205
  Transmission Date: 20140711
  Serious: Yes (Other)
  Sender: FDA-Public Use
  Company Number: US-PFIZER INC-2013336921

PATIENT
  Age: 39 Year
  Sex: Female
  Weight: 71.2 kg

DRUGS (6)
  1. SIROLIMUS [Suspect]
     Indication: TRANSPLANT
     Dosage: 0.5 MG, 1X/DAY
     Route: 048
  2. TACROLIMUS [Concomitant]
     Indication: TRANSPLANT
     Dosage: 0.5 MG, 2X/DAY
     Route: 048
  3. MYCOPHENOLATE MOFETIL [Concomitant]
     Indication: TRANSPLANT
     Dosage: 250 MG, 2X/DAY
     Route: 048
     Dates: end: 20131020
  4. PREDNISONE [Concomitant]
     Indication: TRANSPLANT
     Dosage: 5 MG, 1X/DAY
     Route: 048
  5. METOPROLOL TARTRATE [Concomitant]
     Indication: HYPERTENSION
     Dosage: 25 MG, 2X/DAY
     Route: 048
  6. MULTIVITAMINS [Concomitant]
     Dosage: UNK

REACTIONS (1)
  - Abortion spontaneous [Unknown]
